FAERS Safety Report 24290128 (Version 1)
Quarter: 2024Q3

REPORT INFORMATION
  Report Type: Spontaneous
  Country: US (occurrence: None)
  Receive Date: 20240905
  Receipt Date: 20240905
  Transmission Date: 20241016
  Serious: Yes (Death)
  Sender: Public
  Company Number: None

PATIENT
  Age: 86 Year
  Sex: Female

DRUGS (9)
  1. BIKTARVY [Suspect]
     Active Substance: BICTEGRAVIR SODIUM\EMTRICITABINE\TENOFOVIR ALAFENAMIDE FUMARATE
     Indication: HIV infection
     Dosage: OTHER QUANTITY : 50/200/25MG;?FREQUENCY : DAILY;?
     Route: 048
     Dates: end: 20240905
  2. CHLORTHALIDONE [Concomitant]
  3. LOSARTAN [Concomitant]
  4. METOPROLOL [Concomitant]
  5. HYDRALAZINE [Concomitant]
  6. TERBINAFINE [Concomitant]
  7. FINASTERIDE [Concomitant]
  8. TAMSULOSIN [Concomitant]
  9. Dilltiazem [Concomitant]

REACTIONS (1)
  - Death [None]
